FAERS Safety Report 8103163-X (Version None)
Quarter: 2011Q4

REPORT INFORMATION
  Report Type: 
  Country: None (occurrence: None)
  Receive Date: 20111222
  Receipt Date: 20110923
  Transmission Date: 20120403
  Serious: Yes (Death)
  Sender: FDA-Public Use
  Company Number: UTC-010431

PATIENT
  Age: 88 Year
  Sex: Female
  Weight: 70 kg

DRUGS (6)
  1. TYVASO [Suspect]
     Indication: PULMONARY ARTERIAL HYPERTENSION
     Dosage: 144 MCG (36 MCG, 4 IN 1 D), INHALATION
     Route: 055
     Dates: start: 20110628
  2. ADCIRCA [Concomitant]
  3. ASPIRIN [Concomitant]
  4. O2 (OXYGEN) [Concomitant]
  5. DIURETICS (DIURETICS) [Concomitant]
  6. TRACLEER [Concomitant]

REACTIONS (1)
  - PULMONARY ARTERIAL HYPERTENSION [None]
